FAERS Safety Report 10187934 (Version 1)
Quarter: 2014Q2

REPORT INFORMATION
  Report Type: Spontaneous
  Country: US (occurrence: US)
  Receive Date: 20140522
  Receipt Date: 20140522
  Transmission Date: 20141212
  Serious: No
  Sender: FDA-Public Use
  Company Number: US-SANOFI-AVENTIS-2013SA093891

PATIENT
  Age: 72 Year
  Sex: Female

DRUGS (2)
  1. LANTUS SOLOSTAR [Suspect]
     Dosage: TAKEN FROM:2-3 YEARS AGO DOSE:42 UNIT(S)
     Route: 051
  2. SOLOSTAR [Concomitant]
     Dosage: TAKEN FROM:2-3 YEARS AGO

REACTIONS (1)
  - Injection site haemorrhage [Not Recovered/Not Resolved]
